FAERS Safety Report 20670711 (Version 1)
Quarter: 2022Q2

REPORT INFORMATION
  Report Type: Spontaneous
  Country: US (occurrence: US)
  Receive Date: 20220404
  Receipt Date: 20220404
  Transmission Date: 20220721
  Serious: No
  Sender: FDA-Public Use
  Company Number: US-PFIZER INC-202101074290

PATIENT
  Age: 19 Year
  Sex: Female
  Weight: 49.705 kg

DRUGS (15)
  1. XELJANZ [Suspect]
     Active Substance: TOFACITINIB CITRATE
     Indication: Juvenile idiopathic arthritis
     Dosage: 5 MG, 2X/DAY
     Route: 048
     Dates: start: 20210812
  2. AZITHROMYCIN [Concomitant]
     Active Substance: AZITHROMYCIN
     Dosage: 250 MG
  3. VITAMIN D3 [Concomitant]
     Active Substance: CHOLECALCIFEROL
     Dosage: 1250 UG
  4. METHOTREXATE [Concomitant]
     Active Substance: METHOTREXATE
     Dosage: 2.5 MG
  5. VITAMINS [Concomitant]
     Active Substance: VITAMINS
     Dosage: UNK
  6. SODIUM CHLORIDE [Concomitant]
     Active Substance: SODIUM CHLORIDE
     Dosage: UNK,(7% VIAL-NEB)
  7. FLONASE ALLERGY RELIEF [Concomitant]
     Active Substance: FLUTICASONE PROPIONATE
     Dosage: UNK
  8. LORATADINE [Concomitant]
     Active Substance: LORATADINE
     Dosage: 10 MG
  9. SINGULAIR [Concomitant]
     Active Substance: MONTELUKAST SODIUM
     Dosage: 10 MG
  10. ORIAHNN [Concomitant]
     Active Substance: ELAGOLIX SODIUM\ESTRADIOL\NORETHINDRONE
     Dosage: 300-1-0.5 CAP SEQ
  11. CELEBREX [Concomitant]
     Active Substance: CELECOXIB
     Dosage: 100 MG
  12. PULMOZYME [Concomitant]
     Active Substance: DORNASE ALFA
     Dosage: UNK
  13. TRIKAFTA [Concomitant]
     Active Substance: ELEXACAFTOR\IVACAFTOR\TEZACAFTOR
     Dosage: UNK
  14. CAYSTON [Concomitant]
     Active Substance: AZTREONAM
     Dosage: UNK
  15. INSULIN + SYRINGE [Concomitant]

REACTIONS (3)
  - Pain in extremity [Not Recovered/Not Resolved]
  - Condition aggravated [Not Recovered/Not Resolved]
  - Off label use [Unknown]

NARRATIVE: CASE EVENT DATE: 20210801
